FAERS Safety Report 7252514 (Version 6)
Quarter: 2012Q4

REPORT INFORMATION
  Report Type: Report from Study
  Country: JP (occurrence: JP)
  Receive Date: 20100122
  Receipt Date: 20121018
  Transmission Date: 20130627
  Serious: Yes (Life-Threatening, Other)
  Sender: FDA-Public Use
  Company Number: JP-PFIZER INC-2009232478

PATIENT
  Age: 46 Year
  Sex: Male
  Weight: 64.7 kg

DRUGS (9)
  1. SUTENT [Suspect]
     Indication: RENAL CELL CARCINOMA
     Dosage: 25 mg, once a day
     Route: 048
     Dates: start: 20090114
  2. SUTENT [Suspect]
     Dosage: 50 mg, 1x/day
     Route: 048
     Dates: start: 20090225
  3. SUTENT [Suspect]
     Dosage: 37.5 mg, 1x/day
     Route: 048
     Dates: start: 20090319
  4. SUTENT [Suspect]
     Dosage: 50 mg, 1x/day
     Route: 048
     Dates: end: 20090429
  5. SUTENT [Suspect]
     Dosage: 37.5 mg, 1x/day
     Route: 048
     Dates: start: 20090430, end: 20090505
  6. SUTENT [Suspect]
     Dosage: 37.5 mg, 1x/day
     Route: 048
     Dates: start: 20090610, end: 20090616
  7. SUTENT [Suspect]
     Dosage: 50 mg, 1x/day
     Route: 048
     Dates: start: 20090617, end: 20090630
  8. ALLEGRA [Concomitant]
     Dosage: UNK
     Route: 048
     Dates: start: 20090114
  9. UREPEARL [Concomitant]
     Dosage: UNK
     Dates: start: 20090108

REACTIONS (7)
  - Altered state of consciousness [Recovering/Resolving]
  - Gastrointestinal haemorrhage [Recovering/Resolving]
  - Haemorrhage [Recovering/Resolving]
  - Palmar-plantar erythrodysaesthesia syndrome [Recovering/Resolving]
  - Hypothyroidism [Recovering/Resolving]
  - Platelet count decreased [Recovered/Resolved]
  - Hypothyroidism [Not Recovered/Not Resolved]
